FAERS Safety Report 10086229 (Version 1)
Quarter: 2014Q2

REPORT INFORMATION
  Report Type: Spontaneous
  Country: US (occurrence: None)
  Receive Date: 20140417
  Receipt Date: 20140417
  Transmission Date: 20141212
  Serious: Yes (Hospitalization)
  Sender: FDA-Public Use
  Company Number: None

PATIENT
  Age: 6 Year
  Sex: Male
  Weight: 15.6 kg

DRUGS (1)
  1. CETACAINE TOPICAL ANESTHETIC [Suspect]
     Indication: LOCAL ANAESTHESIA
     Dosage: SPRAY IN THROAT.
     Dates: start: 20140414, end: 20140414

REACTIONS (5)
  - Dyspnoea [None]
  - Dysphagia [None]
  - Throat irritation [None]
  - Oxygen saturation decreased [None]
  - Swelling [None]
